FAERS Safety Report 14770148 (Version 4)
Quarter: 2018Q4

REPORT INFORMATION
  Report Type: Spontaneous
  Country: US (occurrence: US)
  Receive Date: 20180417
  Receipt Date: 20181210
  Transmission Date: 20190204
  Serious: Yes (Hospitalization, Other)
  Sender: FDA-Public Use
  Company Number: US-PFIZER INC-2018150985

PATIENT
  Age: 61 Year
  Sex: Female

DRUGS (3)
  1. XELJANZ XR [Suspect]
     Active Substance: TOFACITINIB CITRATE
     Indication: RHEUMATOID ARTHRITIS
     Dosage: 11 MG, DAILY
     Route: 048
  2. RASUVO [Suspect]
     Active Substance: METHOTREXATE SODIUM
     Dosage: 20 MG, WEEKLY
  3. XELJANZ XR [Suspect]
     Active Substance: TOFACITINIB CITRATE
     Dosage: 11 MG, DAILY
     Route: 048
     Dates: start: 201805

REACTIONS (19)
  - Rheumatoid arthritis [Unknown]
  - Gout [Unknown]
  - Breath odour [Unknown]
  - Deep vein thrombosis [Unknown]
  - Oropharyngeal pain [Unknown]
  - Hypotension [Unknown]
  - Eating disorder [Unknown]
  - Chronic kidney disease [Unknown]
  - Malaise [Unknown]
  - Gait disturbance [Unknown]
  - Blood cholesterol increased [Unknown]
  - Hypovolaemia [Unknown]
  - Urinary tract infection [Unknown]
  - Loss of personal independence in daily activities [Unknown]
  - Dysuria [Unknown]
  - Acute kidney injury [Unknown]
  - Liver function test increased [Unknown]
  - Herpes simplex [Unknown]
  - Influenza [Unknown]

NARRATIVE: CASE EVENT DATE: 201801
